FAERS Safety Report 15230037 (Version 2)
Quarter: 2019Q3

REPORT INFORMATION
  Report Type: Spontaneous
  Country: US (occurrence: US)
  Receive Date: 20180802
  Receipt Date: 20190805
  Transmission Date: 20191004
  Serious: Yes (Other)
  Sender: FDA-Public Use
  Company Number: US-ACCORD-062742

PATIENT
  Age: 38 Year
  Sex: Female
  Weight: 73.94 kg

DRUGS (8)
  1. DOCETAXEL ACCORD [Suspect]
     Active Substance: DOCETAXEL
     Indication: BREAST CANCER
     Dosage: 6 CYCLES EVERY 2 WEEKS
     Route: 042
     Dates: start: 20130129, end: 20130514
  2. DOXORUBICIN [Suspect]
     Active Substance: DOXORUBICIN
     Indication: BREAST CANCER
     Dosage: 6 CYCLE EVERY 2 WEEK
  3. DEXAMETHASONE. [Concomitant]
     Active Substance: DEXAMETHASONE
     Dates: start: 20130122, end: 20130514
  4. ONDANSETRON [Concomitant]
     Active Substance: ONDANSETRON
     Dates: start: 20130129, end: 20150121
  5. ALPRAZOLAM. [Concomitant]
     Active Substance: ALPRAZOLAM
     Dates: start: 19800101, end: 201612
  6. NEOSAR [Suspect]
     Active Substance: CYCLOPHOSPHAMIDE
     Indication: BREAST CANCER
     Dosage: 6 CYCLES AT EVERY 2 WEEKS
     Route: 042
     Dates: start: 20130129, end: 20130514
  7. TRAMADOL. [Concomitant]
     Active Substance: TRAMADOL
     Dates: start: 20130122
  8. DOCETAXEL SANDOZ [Concomitant]
     Active Substance: DOCETAXEL

REACTIONS (1)
  - Alopecia [Not Recovered/Not Resolved]

NARRATIVE: CASE EVENT DATE: 20131101
